FAERS Safety Report 14232230 (Version 1)
Quarter: 2017Q4

REPORT INFORMATION
  Report Type: Spontaneous
  Country: FR (occurrence: FR)
  Receive Date: 20171128
  Receipt Date: 20171128
  Transmission Date: 20180321
  Serious: Yes (Hospitalization)
  Sender: FDA-Public Use
  Company Number: FR-INDIVIOR LIMITED-INDV-106512-2017

PATIENT
  Age: 34 Year
  Sex: Male

DRUGS (13)
  1. NICOTINE. [Suspect]
     Active Substance: NICOTINE
     Indication: PRODUCT USED FOR UNKNOWN INDICATION
     Dosage: ONE PACK PER DAY
     Route: 055
     Dates: start: 1996
  2. SUBUTEX [Suspect]
     Active Substance: BUPRENORPHINE HYDROCHLORIDE
     Dosage: UPTO 8 MG PER DAY;
     Route: 048
     Dates: start: 2017
  3. CANNABIS [Suspect]
     Active Substance: CANNABIS SATIVA SUBSP. INDICA TOP
     Indication: PRODUCT USED FOR UNKNOWN INDICATION
     Dosage: UNK
     Route: 055
  4. HEROIN [Suspect]
     Active Substance: DIAMORPHINE
     Indication: PRODUCT USED FOR UNKNOWN INDICATION
     Dosage: UNK
     Route: 065
  5. LSD [Suspect]
     Active Substance: LYSERGIDE
     Indication: PRODUCT USED FOR UNKNOWN INDICATION
     Dosage: UNK
     Route: 065
  6. SUBUTEX [Suspect]
     Active Substance: BUPRENORPHINE HYDROCHLORIDE
     Indication: PRODUCT USED FOR UNKNOWN INDICATION
     Dosage: UPTO 8MG PER DAY
     Route: 048
     Dates: start: 2014, end: 201611
  7. ALCOHOL. [Suspect]
     Active Substance: ALCOHOL
     Indication: PRODUCT USED FOR UNKNOWN INDICATION
     Dosage: 32 UNITS PER DAY
     Route: 048
     Dates: start: 1998
  8. IMOVANE [Concomitant]
     Active Substance: ZOPICLONE
     Indication: PRODUCT USED FOR UNKNOWN INDICATION
     Dosage: ONE TABLET AT BEDTIME
  9. COCAINE [Suspect]
     Active Substance: COCAINE
     Indication: PRODUCT USED FOR UNKNOWN INDICATION
     Dosage: UNK
     Route: 065
  10. SUBUTEX [Suspect]
     Active Substance: BUPRENORPHINE HYDROCHLORIDE
     Dosage: 8 MG, QD
     Route: 065
     Dates: start: 2017, end: 2017
  11. SUBUTEX [Suspect]
     Active Substance: BUPRENORPHINE HYDROCHLORIDE
     Dosage: REDUCED BETWEEN 2 AND 4 MG
     Route: 048
     Dates: end: 201706
  12. ALCOHOL. [Suspect]
     Active Substance: ALCOHOL
     Dosage: 6 TO 8 UNITS PER DAY
     Route: 048
     Dates: start: 2017
  13. IMOVANE [Concomitant]
     Active Substance: ZOPICLONE
     Dosage: 7.5 MG, QD AT BEDTIME
     Route: 065
     Dates: start: 20171102

REACTIONS (9)
  - Intentional product misuse [Recovering/Resolving]
  - Drug abuse [Not Recovered/Not Resolved]
  - Substance abuser [Not Recovered/Not Resolved]
  - Intentional underdose [Unknown]
  - Drug screen positive [Unknown]
  - Drug dependence [Recovered/Resolved]
  - Product use issue [Not Recovered/Not Resolved]
  - Alcohol abuse [Recovering/Resolving]
  - Drug abuse [Recovered/Resolved]

NARRATIVE: CASE EVENT DATE: 2014
